FAERS Safety Report 9189502 (Version 1)
Quarter: 2013Q1

REPORT INFORMATION
  Report Type: Spontaneous
  Country: DE (occurrence: DE)
  Receive Date: 20130326
  Receipt Date: 20130326
  Transmission Date: 20140127
  Serious: No
  Sender: FDA-Public Use
  Company Number: PHHY2013DE029053

PATIENT
  Sex: Female

DRUGS (1)
  1. LAMISIL [Suspect]
     Indication: ONYCHOMYCOSIS
     Dosage: 250 MG, ONCE DAILY FOLLOWED BY AN ADMINISTRATION OF TWICE WEEKLY CURRENTLY
     Route: 048
     Dates: start: 201302

REACTIONS (1)
  - Drug administration error [Unknown]
